FAERS Safety Report 23219614 (Version 1)
Quarter: 2023Q4

REPORT INFORMATION
  Report Type: Spontaneous
  Country: US (occurrence: US)
  Receive Date: 20231122
  Receipt Date: 20231122
  Transmission Date: 20240110
  Serious: No
  Sender: FDA-Public Use
  Company Number: US-ABBVIE-5505372

PATIENT
  Age: 46 Year
  Sex: Female
  Weight: 88 kg

DRUGS (8)
  1. HUMIRA [Suspect]
     Active Substance: ADALIMUMAB
     Indication: Ankylosing spondylitis
     Route: 058
     Dates: start: 20220807
  2. HUMIRA [Suspect]
     Active Substance: ADALIMUMAB
     Indication: Uveitis
  3. SODIUM FLUORIDE [Concomitant]
     Active Substance: SODIUM FLUORIDE\SODIUM MONOFLUOROPHOSPHATE
     Indication: Product used for unknown indication
     Dosage: 5000 SENSITIVE 1.1-5% GEL?BRUSH FOR 2 MINUTES AND EXPECTORATE AFTER BREAKFAST AND AT BEDTIME DO N...
     Dates: start: 20230629
  4. NIZORAL [Concomitant]
     Active Substance: KETOCONAZOLE
     Indication: Product used for unknown indication
     Dosage: 2% USE AS SHAMPOO 1 TO 2 TIMES MONTH. LEAVE FOR 5 MINUTES PRIOR TO RINSING
     Dates: start: 20230721, end: 20231114
  5. ACULAR [Concomitant]
     Active Substance: KETOROLAC TROMETHAMINE
     Indication: Product used for unknown indication
     Dosage: 0.5% OPHTHALMIC SOLUTION ?PLACE 1 DROP INTO BOTH EYES
     Dates: start: 20220922
  6. LODINE [Concomitant]
     Active Substance: ETODOLAC
     Indication: Product used for unknown indication
     Dates: start: 20211004
  7. DERMA-SMOOTHE/FS [Concomitant]
     Active Substance: FLUOCINOLONE ACETONIDE
     Indication: Product used for unknown indication
     Dosage: APPLY DAILY TO SCALP ON THE WEEKENDS. SCALP OIL, BODY OIL, BRAND OR GENERIC ARE ALL ACCEPTABLE
     Dates: start: 20221107
  8. TYLENOL [Concomitant]
     Active Substance: ACETAMINOPHEN
     Indication: Pain
     Dosage: 500MG ?TAKE 1 TABLET BY MOUTH 4 TIMES DAILY AS NEEDED FOR PAIN

REACTIONS (6)
  - Skin irritation [Unknown]
  - Seborrhoeic dermatitis [Recovering/Resolving]
  - Rash pruritic [Unknown]
  - Dermatitis [Unknown]
  - Blood pressure abnormal [Unknown]
  - Rash papular [Unknown]

NARRATIVE: CASE EVENT DATE: 20230901
